FAERS Safety Report 12524124 (Version 3)
Quarter: 2016Q4

REPORT INFORMATION
  Report Type: Spontaneous
  Country: US (occurrence: US)
  Receive Date: 20160704
  Receipt Date: 20161215
  Transmission Date: 20170207
  Serious: Yes (Other)
  Sender: FDA-Public Use
  Company Number: PHEH2016US016524

PATIENT
  Age: 54 Year
  Sex: Female
  Weight: 130 kg

DRUGS (2)
  1. COSENTYX [Suspect]
     Active Substance: SECUKINUMAB
     Indication: PSORIATIC ARTHROPATHY
  2. COSENTYX [Suspect]
     Active Substance: SECUKINUMAB
     Indication: PSORIASIS
     Dosage: 300 MG, QMO
     Route: 058
     Dates: start: 20151230, end: 20160608

REACTIONS (11)
  - Eye oedema [Unknown]
  - Blepharitis [Recovered/Resolved]
  - Angioedema [Recovered/Resolved]
  - Oedema mouth [Unknown]
  - Eyelid oedema [Unknown]
  - Mouth swelling [Unknown]
  - Lip swelling [Recovered/Resolved]
  - Oedema [Unknown]
  - Eye swelling [Unknown]
  - Swelling [Unknown]
  - Facial spasm [Unknown]

NARRATIVE: CASE EVENT DATE: 20160602
